FAERS Safety Report 8042996-5 (Version None)
Quarter: 2012Q1

REPORT INFORMATION
  Report Type: 
  Country: None (occurrence: None)
  Receive Date: 20120112
  Receipt Date: 20120109
  Transmission Date: 20120608
  Serious: Yes (Hospitalization)
  Sender: FDA-Public Use
  Company Number: PHHY2012DE002143

PATIENT
  Sex: Female

DRUGS (2)
  1. GILENYA [Suspect]
     Indication: MULTIPLE SCLEROSIS
     Dosage: 0.5 MG, PER DAY
     Route: 048
  2. GILENYA [Suspect]
     Dosage: 0.5 MG, PER DAY
     Route: 048

REACTIONS (2)
  - JOINT SWELLING [None]
  - IMPAIRED HEALING [None]
